FAERS Safety Report 6320297-0 (Version None)
Quarter: 2009Q3

REPORT INFORMATION
  Report Type: 
  Country: None (occurrence: None)
  Receive Date: 20090822
  Receipt Date: 20081029
  Transmission Date: 20100115
  Serious: No
  Sender: FDA-Public Use
  Company Number: US-ABBOTT-08P-163-0484770-00

PATIENT
  Sex: Female

DRUGS (7)
  1. NIASPAN [Suspect]
     Indication: HYPERCHOLESTEROLAEMIA
     Dates: start: 20081013
  2. ATENOLOL W/HYDROCHLOROTHIAZIDE [Concomitant]
     Indication: DRUG USE FOR UNKNOWN INDICATION
  3. FELODIPINE [Concomitant]
     Indication: DRUG USE FOR UNKNOWN INDICATION
  4. IRBESARTAN [Concomitant]
     Indication: DRUG USE FOR UNKNOWN INDICATION
  5. INEGY [Concomitant]
     Indication: DRUG USE FOR UNKNOWN INDICATION
  6. LANTUS [Concomitant]
     Indication: DRUG USE FOR UNKNOWN INDICATION
     Dosage: QPM
  7. INSULIN LISPRO [Concomitant]
     Indication: DRUG USE FOR UNKNOWN INDICATION
     Dosage: BEFORE MEALS

REACTIONS (1)
  - BLOOD GLUCOSE INCREASED [None]
